FAERS Safety Report 4283920-0 (Version None)
Quarter: 2004Q1

REPORT INFORMATION
  Report Type: 
  Country: None (occurrence: None)
  Receive Date: 20040115
  Receipt Date: 20030605
  Transmission Date: 20041129
  Serious: Yes (Death)
  Sender: FDA-Public Use
  Company Number: NSADSS2003015501

PATIENT
  Age: 72 Year
  Sex: Male
  Weight: 77.1115 kg

DRUGS (11)
  1. DOXIL [Suspect]
     Indication: NON-HODGKIN'S LYMPHOMA
     Dosage: 45 MG, 1 IN, INTRAVENOUS DRIP
     Route: 041
     Dates: start: 20030307, end: 20030307
  2. ACETAMINOPHEN ( ) PARACETOMOL [Concomitant]
  3. MORPHINE [Concomitant]
  4. DILTIAZEM [Concomitant]
  5. LANOXIN [Concomitant]
  6. ACIPHEX [Concomitant]
  7. STARLIX [Concomitant]
  8. FLOMAX [Concomitant]
  9. MULTI-VITAMINS [Concomitant]
  10. AMBIEN [Concomitant]
  11. DARVON [Concomitant]

REACTIONS (2)
  - CONDITION AGGRAVATED [None]
  - HERPES ZOSTER [None]
